FAERS Safety Report 8666096 (Version 6)
Quarter: 2013Q2

REPORT INFORMATION
  Report Type: Spontaneous
  Country: US (occurrence: US)
  Receive Date: 20120716
  Receipt Date: 20130405
  Transmission Date: 20140414
  Serious: Yes (Other)
  Sender: FDA-Public Use
  Company Number: US-PFIZER INC-2012169635

PATIENT
  Age: 78 Year
  Sex: Female
  Weight: 71.2 kg

DRUGS (8)
  1. DIFLUCAN [Suspect]
     Indication: CANDIDA INFECTION
     Dosage: 150 MG
     Route: 048
     Dates: start: 201206
  2. DIFLUCAN [Suspect]
     Indication: CANDIDA INFECTION
     Dosage: 400 MG, 1X/DAY
     Route: 048
  3. DIFLUCAN [Suspect]
     Indication: FUNGAL INFECTION
     Dosage: 200 MG, 1X/DAY
     Route: 048
  4. DIFLUCAN [Suspect]
     Dosage: 200 MG, 1X/DAY
     Route: 048
  5. DIFLUCAN [Suspect]
     Indication: FUNGAL INFECTION
     Dosage: 200 MG, 1X/DAY
     Route: 042
     Dates: start: 201206, end: 201206
  6. DIFLUCAN [Suspect]
     Indication: CANDIDA INFECTION
  7. CLINDAMYCIN PHOSPHATE [Suspect]
     Indication: FUNGAL INFECTION
     Dosage: UNK
  8. CLINDAMYCIN PHOSPHATE [Suspect]
     Indication: CANDIDA INFECTION

REACTIONS (9)
  - Candida infection [Unknown]
  - Drug resistance [Unknown]
  - Pain [Recovered/Resolved]
  - Discomfort [Not Recovered/Not Resolved]
  - Constipation [Unknown]
  - Dry eye [Unknown]
  - Dry skin [Unknown]
  - Thyroid disorder [Unknown]
  - Treatment noncompliance [Unknown]
